FAERS Safety Report 5220105-5 (Version None)
Quarter: 2006Q4

REPORT INFORMATION
  Report Type: 
  Country: None (occurrence: None)
  Receive Date: 20061121
  Receipt Date: 20060802
  Transmission Date: 20070319
  Serious: No
  Sender: FDA-Public Use
  Company Number: TPA2006A01256

PATIENT
  Age: 69 Year
  Sex: Male
  Weight: 86.1834 kg

DRUGS (9)
  1. ROZEREM [Suspect]
     Indication: INSOMNIA
     Dosage: 8 MG, HS, PER ORAL
     Route: 048
     Dates: start: 20060731
  2. COUMADIN [Concomitant]
  3. UNKNOWN ANTIDEPRESSANT (ANTIDEPRESSANTS) [Concomitant]
  4. LITHIUM CARBONATE [Concomitant]
  5. DIGOXIN [Concomitant]
  6. UNKNOWN ORAL ASTHMA MEDICATION (OTHER ANTI-ASTHMATICS FOR SYSTEMIC USE [Concomitant]
  7. PREDNISONE TAB [Concomitant]
  8. ALBUTEROL [Concomitant]
  9. AMBIEN [Concomitant]

REACTIONS (1)
  - INSOMNIA [None]
